FAERS Safety Report 9562965 (Version 2)
Quarter: 2013Q4

REPORT INFORMATION
  Report Type: Spontaneous
  Country: US (occurrence: US)
  Receive Date: 20130927
  Receipt Date: 20131113
  Transmission Date: 20140711
  Serious: Yes (Hospitalization, Other)
  Sender: FDA-Public Use
  Company Number: CHPA2013US014730

PATIENT
  Age: 83 Year
  Sex: Male

DRUGS (5)
  1. DESENEX MICONAZOLE NITRATE [Suspect]
     Indication: MILIARIA
     Dosage: UNK, QD
     Route: 061
  2. DESENEX MICONAZOLE NITRATE [Suspect]
     Indication: FUNGAL INFECTION
  3. DESENEX MICONAZOLE NITRATE [Suspect]
     Indication: PROPHYLAXIS
  4. DESENEX MICONAZOLE NITRATE [Suspect]
     Indication: PRURITUS
  5. DESENEX MICONAZOLE NITRATE [Suspect]
     Indication: OFF LABEL USE

REACTIONS (10)
  - Cardiac failure congestive [Not Recovered/Not Resolved]
  - Fungal infection [Recovered/Resolved]
  - Testicular swelling [Recovered/Resolved]
  - Genital swelling [Recovered/Resolved]
  - Swelling [Recovered/Resolved]
  - Scrotal swelling [Recovered/Resolved]
  - Incorrect drug administration duration [Unknown]
  - Expired drug administered [Unknown]
  - Drug administered at inappropriate site [Unknown]
  - Therapeutic response unexpected [Unknown]
